FAERS Safety Report 24217431 (Version 1)
Quarter: 2024Q3

REPORT INFORMATION
  Report Type: Spontaneous
  Country: IL (occurrence: IL)
  Receive Date: 20240816
  Receipt Date: 20240816
  Transmission Date: 20241017
  Serious: Yes (Hospitalization, Other)
  Sender: BRISTOL MYERS SQUIBB
  Company Number: IL-BRISTOL-MYERS SQUIBB COMPANY-2024-127879

PATIENT
  Age: 66 Year
  Sex: Male

DRUGS (4)
  1. NIVOLUMAB [Suspect]
     Active Substance: NIVOLUMAB
     Indication: Product used for unknown indication
  2. IPILIMUMAB [Suspect]
     Active Substance: IPILIMUMAB
     Indication: Product used for unknown indication
  3. ALIMTA [Concomitant]
     Active Substance: PEMETREXED DISODIUM
     Indication: Product used for unknown indication
  4. CABOZANTINIB [Concomitant]
     Active Substance: CABOZANTINIB
     Indication: Product used for unknown indication

REACTIONS (4)
  - Rash [Unknown]
  - Pancytopenia [Unknown]
  - Diarrhoea [Unknown]
  - Diabetic ketoacidosis [Unknown]
